FAERS Safety Report 6192257-4 (Version None)
Quarter: 2009Q2

REPORT INFORMATION
  Report Type: 
  Country: None (occurrence: None)
  Receive Date: 20090515
  Receipt Date: 20090511
  Transmission Date: 20091009
  Serious: Yes (Hospitalization)
  Sender: FDA-Public Use
  Company Number: PHHO2009CZ05899

PATIENT
  Sex: Male
  Weight: 51 kg

DRUGS (3)
  1. NEORAL [Suspect]
     Indication: RENAL TRANSPLANT
     Dosage: 50 MG, QD
     Route: 048
     Dates: start: 20080507
  2. PREDNISONE [Concomitant]
     Indication: RENAL TRANSPLANT
     Dosage: 5 MG, QD
     Route: 048
     Dates: start: 20080906
  3. CERTICAN [Concomitant]
     Indication: RENAL TRANSPLANT
     Dosage: 1.0 MG, BID
     Route: 048
     Dates: start: 20080906

REACTIONS (1)
  - COMPLICATIONS OF TRANSPLANTED KIDNEY [None]
